FAERS Safety Report 12449108 (Version 1)
Quarter: 2016Q2

REPORT INFORMATION
  Report Type: Spontaneous
  Country: FR (occurrence: FR)
  Receive Date: 20160608
  Receipt Date: 20160608
  Transmission Date: 20160815
  Serious: Yes (Disabling, Other)
  Sender: FDA-Public Use
  Company Number: FR-ASTRAZENECA-2013SE88336

PATIENT
  Age: 66 Year
  Sex: Female

DRUGS (6)
  1. ZOMIG [Suspect]
     Active Substance: ZOLMITRIPTAN
     Indication: MIGRAINE
     Dosage: 1 TABLET ON DEMAND WHEN MIGRAINE CRISIS
     Route: 048
     Dates: start: 1996
  2. PLATINE [Suspect]
     Active Substance: CISPLATIN
     Indication: ENDOMETRIAL CANCER
     Route: 065
     Dates: start: 20160121
  3. AVASTIN [Suspect]
     Active Substance: BEVACIZUMAB
     Indication: ENDOMETRIAL CANCER
     Route: 065
  4. UTROGESTAN [Concomitant]
     Active Substance: PROGESTERONE
     Indication: HORMONE LEVEL ABNORMAL
     Route: 065
     Dates: start: 1992, end: 201311
  5. OESCLIM [Concomitant]
     Active Substance: ESTRADIOL
     Indication: HORMONE LEVEL ABNORMAL
     Route: 065
     Dates: start: 1992, end: 201311
  6. INNOHEP [Concomitant]
     Active Substance: TINZAPARIN SODIUM
     Indication: PROPHYLAXIS
     Dates: start: 201601

REACTIONS (6)
  - Temperature regulation disorder [None]
  - Peripheral coldness [Unknown]
  - Insomnia [Unknown]
  - Depression [Unknown]
  - Endometrial cancer metastatic [Recovering/Resolving]
  - Migraine [Not Recovered/Not Resolved]

NARRATIVE: CASE EVENT DATE: 2011
